FAERS Safety Report 5680696-7 (Version None)
Quarter: 2008Q1

REPORT INFORMATION
  Report Type: 
  Country: None (occurrence: None)
  Receive Date: 20080326
  Receipt Date: 20080115
  Transmission Date: 20080703
  Serious: No
  Sender: FDA-Public Use
  Company Number: US-BAUSCH-2008BL000154

PATIENT
  Age: 78 Year
  Sex: Female

DRUGS (3)
  1. ALAWAY [Suspect]
     Indication: EYE PRURITUS
     Route: 047
     Dates: start: 20080114, end: 20080114
  2. ALAWAY [Suspect]
     Indication: EYE ALLERGY
     Route: 047
     Dates: start: 20080114, end: 20080114
  3. ALPHAGAN [Concomitant]

REACTIONS (2)
  - ERYTHEMA OF EYELID [None]
  - EYELID OEDEMA [None]
